FAERS Safety Report 4701007-7 (Version None)
Quarter: 2005Q2

REPORT INFORMATION
  Report Type: 
  Country: None (occurrence: None)
  Receive Date: 20050624
  Receipt Date: 20050614
  Transmission Date: 20051028
  Serious: Yes (Other)
  Sender: FDA-Public Use
  Company Number: HQWYE504216JUN05

PATIENT
  Sex: Male
  Weight: 13.17 kg

DRUGS (1)
  1. EFFEXOR XR [Suspect]
     Dosage: TRANSPLACENTAL
     Route: 064

REACTIONS (6)
  - DEVELOPMENTAL DELAY [None]
  - DRUG EXPOSURE DURING PREGNANCY [None]
  - FEEDING PROBLEM IN CHILD [None]
  - HYPOTONIA NEONATAL [None]
  - SPEECH DISORDER DEVELOPMENTAL [None]
  - UNDERWEIGHT [None]
